FAERS Safety Report 7353554-X (Version None)
Quarter: 2011Q1

REPORT INFORMATION
  Report Type: 
  Country: None (occurrence: None)
  Receive Date: 20110315
  Receipt Date: 20110308
  Transmission Date: 20110831
  Serious: Yes (Hospitalization)
  Sender: FDA-Public Use
  Company Number: US-ELI_LILLY_AND_COMPANY-US201103002960

PATIENT
  Sex: Female

DRUGS (13)
  1. LOPRESSOR [Concomitant]
  2. FISH OIL [Concomitant]
  3. ATIVAN [Concomitant]
  4. NORPRAMIN [Concomitant]
  5. PREDNISONE [Concomitant]
  6. FENTANYL [Concomitant]
     Indication: PAIN
  7. FORTEO [Suspect]
     Indication: OSTEOPOROSIS
     Dosage: 20 UG, DAILY (1/D)
     Dates: start: 20100219
  8. EFFEXOR [Concomitant]
  9. OXYCODONE [Concomitant]
  10. MULTI-VITAMIN [Concomitant]
  11. LASIX [Concomitant]
  12. CALCIUM [Concomitant]
  13. IMURAN [Concomitant]

REACTIONS (7)
  - DIZZINESS [None]
  - VISION BLURRED [None]
  - WRIST FRACTURE [None]
  - DENTAL CARIES [None]
  - GINGIVITIS [None]
  - FALL [None]
  - HIP ARTHROPLASTY [None]
